FAERS Safety Report 8337378-2 (Version None)
Quarter: 2012Q2

REPORT INFORMATION
  Report Type: 
  Country: None (occurrence: None)
  Receive Date: 20120504
  Receipt Date: 20120425
  Transmission Date: 20120825
  Serious: Yes (Hospitalization)
  Sender: FDA-Public Use
  Company Number: KR-ASTRAZENECA-2012SE27133

PATIENT
  Age: 25894 Day
  Sex: Male

DRUGS (14)
  1. IRBESARTAN [Concomitant]
     Indication: HYPERTENSION
     Route: 048
     Dates: start: 20120130
  2. ASPIRIN [Suspect]
     Indication: ACUTE CORONARY SYNDROME
     Route: 048
     Dates: start: 20110928, end: 20120424
  3. DICHLOZID [Concomitant]
     Indication: HYPERTENSION
     Route: 048
     Dates: start: 20110927
  4. ATROVENT [Concomitant]
     Indication: ASTHMA
     Route: 055
     Dates: start: 20110928
  5. FLUTICASONE PROPIONATE/SALMETEROL [Concomitant]
     Indication: ASTHMA
     Route: 055
     Dates: start: 20120117, end: 20120423
  6. PREGREL [Concomitant]
     Indication: THROMBOSIS PROPHYLAXIS
     Route: 048
     Dates: start: 20120423, end: 20120424
  7. SPIRIVA [Concomitant]
     Indication: ASTHMA
     Route: 055
     Dates: end: 20120423
  8. PLACEBO [Suspect]
     Indication: ACUTE CORONARY SYNDROME
     Dosage: ONES DAILY
     Route: 048
     Dates: start: 20110928, end: 20120420
  9. ONON [Concomitant]
     Indication: ASTHMA
     Route: 048
     Dates: start: 20060905, end: 20120423
  10. DOXOFYLLINE [Concomitant]
     Indication: ASTHMA
     Route: 048
     Dates: start: 20100524, end: 20120423
  11. BUDESONIDE [Concomitant]
     Indication: ASTHMA
     Route: 055
     Dates: start: 20110928
  12. AZD6140 [Suspect]
     Indication: ACUTE CORONARY SYNDROME
     Route: 048
     Dates: start: 20110928, end: 20120420
  13. REBAMIPIDE [Concomitant]
     Indication: ASTHMA
     Route: 048
     Dates: start: 20060519, end: 20120423
  14. LIPITOR [Concomitant]
     Indication: ANGINA PECTORIS
     Route: 048
     Dates: start: 20110930

REACTIONS (1)
  - CHRONIC OBSTRUCTIVE PULMONARY DISEASE [None]
